FAERS Safety Report 7090147-6 (Version None)
Quarter: 2010Q4

REPORT INFORMATION
  Report Type: 
  Country: None (occurrence: None)
  Receive Date: 20101105
  Receipt Date: 20101105
  Transmission Date: 20110411
  Serious: Yes (Other)
  Sender: FDA-Public Use
  Company Number: None

PATIENT
  Age: 60 Year
  Sex: Female
  Weight: 52.1637 kg

DRUGS (8)
  1. OXALIPLATIN [Suspect]
     Indication: COLON CANCER
     Dosage: 110 MG Q 2WKS
     Dates: start: 20100628
  2. OXALIPLATIN [Suspect]
     Indication: COLON CANCER
     Dosage: 110 MG Q 2WKS
     Dates: start: 20100712
  3. OXALIPLATIN [Suspect]
     Indication: COLON CANCER
     Dosage: 110 MG Q 2WKS
     Dates: start: 20100727
  4. OXALIPLATIN [Suspect]
     Indication: COLON CANCER
     Dosage: 110 MG Q 2WKS
     Dates: start: 20100816
  5. OXALIPLATIN [Suspect]
     Indication: COLON CANCER
     Dosage: 110 MG Q 2WKS
     Dates: start: 20100830
  6. OXALIPLATIN [Suspect]
     Indication: COLON CANCER
     Dosage: 110 MG Q 2WKS
     Dates: start: 20100913
  7. OXALIPLATIN [Suspect]
     Indication: COLON CANCER
     Dosage: 110 MG Q 2WKS
     Dates: start: 20100927
  8. OXALIPLATIN [Suspect]
     Indication: COLON CANCER
     Dosage: 110 MG Q 2WKS
     Dates: start: 20101018

REACTIONS (4)
  - BLOOD PRESSURE DECREASED [None]
  - DIZZINESS [None]
  - FEELING HOT [None]
  - NAUSEA [None]
